FAERS Safety Report 25310989 (Version 1)
Quarter: 2025Q2

REPORT INFORMATION
  Report Type: Spontaneous
  Country: US (occurrence: None)
  Receive Date: 20250514
  Receipt Date: 20250514
  Transmission Date: 20250717
  Serious: No
  Sender: ENCUBE ETHICALS
  Company Number: US-Encube-001744

PATIENT
  Age: 93 Year
  Sex: Female

DRUGS (3)
  1. DICLOFENAC SODIUM [Suspect]
     Active Substance: DICLOFENAC SODIUM
     Indication: Arthralgia
  2. CLONIDINE [Suspect]
     Active Substance: CLONIDINE
     Indication: Blood pressure measurement
     Dosage: IN THE MORNING AT EIGHT AND AT NIGHT AT NINE
     Dates: start: 2014
  3. AMLODIPINE BESYLATE [Suspect]
     Active Substance: AMLODIPINE BESYLATE
     Indication: Blood pressure measurement
     Dosage: IN THE MORNING AT EIGHT AND AT NIGHT AT NINE
     Dates: start: 2024

REACTIONS (2)
  - Pruritus [Not Recovered/Not Resolved]
  - Product use issue [Unknown]
